FAERS Safety Report 23618785 (Version 1)
Quarter: 2024Q1

REPORT INFORMATION
  Report Type: Spontaneous
  Country: FR (occurrence: FR)
  Receive Date: 20240311
  Receipt Date: 20240311
  Transmission Date: 20240409
  Serious: Yes (Hospitalization)
  Sender: FDA-Public Use
  Company Number: None

PATIENT
  Age: 3 Year
  Sex: Female
  Weight: 16 kg

DRUGS (5)
  1. METHYLPREDNISOLONE [Suspect]
     Active Substance: METHYLPREDNISOLONE
     Indication: Still^s disease
     Dosage: 1 MG, 1X/DAY
     Route: 048
     Dates: start: 20221217
  2. SIROLIMUS [Suspect]
     Active Substance: SIROLIMUS
     Indication: Still^s disease
     Dosage: 4 MG, 1X/DAY
     Dates: start: 20230706, end: 20240124
  3. MAS-825 [Suspect]
     Active Substance: MAS-825
     Indication: Still^s disease
     Dosage: 170 MG, WEEKLY
     Route: 042
     Dates: start: 20230510
  4. ILARIS [Suspect]
     Active Substance: CANAKINUMAB
     Indication: Still^s disease
     Dosage: 150 MG, FREQ:2 WK;
     Route: 058
     Dates: start: 20230204, end: 20230422
  5. ILARIS [Suspect]
     Active Substance: CANAKINUMAB
     Dosage: 150 MG, FREQ:2 WK;
     Route: 058
     Dates: start: 20230727

REACTIONS (4)
  - Lung disorder [Recovering/Resolving]
  - Pneumococcal bacteraemia [Recovering/Resolving]
  - Culture stool positive [Recovering/Resolving]
  - Off label use [Unknown]

NARRATIVE: CASE EVENT DATE: 20240105
